FAERS Safety Report 6967573 (Version 4)
Quarter: 2016Q1

REPORT INFORMATION
  Report Type: Report from Study
  Country: JP (occurrence: JP)
  Receive Date: 20090413
  Receipt Date: 20160311
  Transmission Date: 20160526
  Serious: Yes (Death, Hospitalization, Disabling)
  Sender: FDA-Public Use
  Company Number: PHHY2009JP12035

PATIENT
  Age: 75 Year
  Sex: Male

DRUGS (9)
  1. ICL670A [Suspect]
     Active Substance: DEFERASIROX
     Indication: IRON OVERLOAD
     Dosage: 250 MG, QD
     Route: 048
     Dates: start: 20081202, end: 20090113
  2. ICL670A [Suspect]
     Active Substance: DEFERASIROX
     Indication: CHRONIC LYMPHOCYTIC LEUKAEMIA
  3. SPIRONOLACTONE. [Concomitant]
     Active Substance: SPIRONOLACTONE
     Indication: PRODUCT USED FOR UNKNOWN INDICATION
     Dosage: 25 MG, UNK
     Route: 048
     Dates: start: 20081201, end: 20090113
  4. FUROSEMIDE. [Concomitant]
     Active Substance: FUROSEMIDE
     Indication: PRODUCT USED FOR UNKNOWN INDICATION
     Dosage: 40 MG, UNK
     Route: 048
     Dates: start: 20081201, end: 20090113
  5. GASTER [Concomitant]
     Active Substance: FAMOTIDINE
     Indication: PRODUCT USED FOR UNKNOWN INDICATION
     Dosage: 20 MG, UNK
     Route: 048
     Dates: start: 20081201, end: 20090113
  6. BAKTAR [Concomitant]
     Active Substance: SULFAMETHOXAZOLE\TRIMETHOPRIM
     Indication: PRODUCT USED FOR UNKNOWN INDICATION
     Dosage: 2 G, UNK
     Route: 048
     Dates: start: 20081201, end: 20090113
  7. BIO-THREE [Concomitant]
     Active Substance: HERBALS
     Indication: PRODUCT USED FOR UNKNOWN INDICATION
     Dosage: 3 DF, UNK
     Route: 048
     Dates: start: 20081201, end: 20090113
  8. DEXAMETHASONE. [Concomitant]
     Active Substance: DEXAMETHASONE
     Indication: CHRONIC LYMPHOCYTIC LEUKAEMIA
     Dosage: 2 MG, UNK
     Route: 048
     Dates: start: 20081201, end: 20090113
  9. DESFERAL [Concomitant]
     Active Substance: DEFEROXAMINE MESYLATE
     Indication: PRODUCT USED FOR UNKNOWN INDICATION
     Route: 030
     Dates: start: 20080428, end: 20081121

REACTIONS (18)
  - Blood creatinine increased [Recovered/Resolved]
  - Lymphocyte count decreased [Not Recovered/Not Resolved]
  - Aspartate aminotransferase decreased [Recovered/Resolved]
  - Blood bilirubin increased [Not Recovered/Not Resolved]
  - Decreased appetite [Not Recovered/Not Resolved]
  - Renal disorder [Recovered/Resolved]
  - Blood lactate dehydrogenase decreased [Not Recovered/Not Resolved]
  - Blood urea increased [Not Recovered/Not Resolved]
  - Neutrophil count decreased [Recovered/Resolved]
  - Alanine aminotransferase increased [Recovered/Resolved]
  - Chronic lymphocytic leukaemia [Fatal]
  - Blood alkaline phosphatase increased [Recovered/Resolved]
  - Platelet count decreased [Not Recovered/Not Resolved]
  - Malignant neoplasm progression [Fatal]
  - Thrombocytopenia [Fatal]
  - Haemoglobin decreased [Not Recovered/Not Resolved]
  - Eosinophil count decreased [Recovered/Resolved]
  - Gamma-glutamyltransferase decreased [Not Recovered/Not Resolved]

NARRATIVE: CASE EVENT DATE: 20081209
